FAERS Safety Report 22540118 (Version 1)
Quarter: 2023Q2

REPORT INFORMATION
  Report Type: Spontaneous
  Country: DK (occurrence: DK)
  Receive Date: 20230609
  Receipt Date: 20230609
  Transmission Date: 20230721
  Serious: Yes (Hospitalization)
  Sender: FDA-Public Use
  Company Number: None

PATIENT
  Age: 73 Year
  Sex: Male
  Weight: 70 kg

DRUGS (5)
  1. BENDAMUSTINE HYDROCHLORIDE [Suspect]
     Active Substance: BENDAMUSTINE HYDROCHLORIDE
     Indication: Neoplasm malignant
     Dosage: STRENGTH: 2.5 MG/ML. DOSAGE: VARYING BETWEEN 180 MG AND 190 MG.
     Dates: start: 20230106
  2. VALACYCLOVIR HYDROCHLORIDE [Concomitant]
     Active Substance: VALACYCLOVIR HYDROCHLORIDE
     Indication: Herpes virus infection
     Dates: start: 20230105
  3. FINASTERIDE [Concomitant]
     Active Substance: FINASTERIDE
     Indication: Prostatomegaly
     Dates: start: 20110710
  4. PANTOPRAZOLE [Concomitant]
     Active Substance: PANTOPRAZOLE
     Indication: Gastrooesophageal reflux disease
     Dates: start: 20230330
  5. ELIQUIS [Concomitant]
     Active Substance: APIXABAN
     Indication: Thrombosis prophylaxis
     Dates: start: 20230113

REACTIONS (2)
  - Hydronephrosis [Unknown]
  - Urinary retention [Unknown]

NARRATIVE: CASE EVENT DATE: 20230101
